FAERS Safety Report 4589864-9 (Version None)
Quarter: 2005Q1

REPORT INFORMATION
  Report Type: 
  Country: None (occurrence: None)
  Receive Date: 20050223
  Receipt Date: 20050216
  Transmission Date: 20050727
  Serious: Yes (Life-Threatening, Hospitalization)
  Sender: FDA-Public Use
  Company Number: US-MERCK-0502USA02180

PATIENT

DRUGS (3)
  1. ZOCOR [Suspect]
     Route: 048
  2. ZITHROMAX [Concomitant]
     Route: 065
  3. CARDIZEM [Concomitant]
     Route: 065

REACTIONS (1)
  - CARDIAC ARREST [None]
